FAERS Safety Report 22629935 (Version 1)
Quarter: 2023Q2

REPORT INFORMATION
  Report Type: Spontaneous
  Country: US (occurrence: US)
  Receive Date: 20230622
  Receipt Date: 20230622
  Transmission Date: 20230722
  Serious: Yes (Other)
  Sender: FDA-Public Use
  Company Number: US-BRISTOL-MYERS SQUIBB COMPANY-2023-088149

PATIENT
  Age: 94 Year
  Sex: Male
  Weight: 56.7 kg

DRUGS (1)
  1. ELIQUIS [Suspect]
     Active Substance: APIXABAN
     Indication: Product used for unknown indication
     Route: 048
     Dates: start: 202306, end: 20230611

REACTIONS (2)
  - Epistaxis [Unknown]
  - Haematochezia [Unknown]

NARRATIVE: CASE EVENT DATE: 20230601
